FAERS Safety Report 25130378 (Version 1)
Quarter: 2025Q1

REPORT INFORMATION
  Report Type: Report from Study
  Country: US (occurrence: US)
  Receive Date: 20250327
  Receipt Date: 20250327
  Transmission Date: 20250408
  Serious: No
  Sender: ESPERION THERAPEUTICS
  Company Number: US-ESPERIONTHERAPEUTICS-2024USA01017

PATIENT
  Sex: Female

DRUGS (1)
  1. BEMPEDOIC ACID\EZETIMIBE [Suspect]
     Active Substance: BEMPEDOIC ACID\EZETIMIBE
     Indication: Product used for unknown indication
     Route: 065

REACTIONS (6)
  - Renal function test abnormal [Unknown]
  - Renal disorder [Unknown]
  - Pruritus [Unknown]
  - Burning sensation [Unknown]
  - Arthralgia [Recovering/Resolving]
  - Muscle spasms [Recovering/Resolving]
